FAERS Safety Report 16631706 (Version 1)
Quarter: 2019Q3

REPORT INFORMATION
  Report Type: Spontaneous
  Country: US (occurrence: US)
  Receive Date: 20190725
  Receipt Date: 20190725
  Transmission Date: 20191004
  Serious: No
  Sender: FDA-Public Use
  Company Number: US-GALDERMA-US18044910

PATIENT
  Age: 36 Year
  Sex: Female

DRUGS (6)
  1. PROACTIV EYE BRIGHTENING SERUM [Concomitant]
     Active Substance: COSMETICS
     Indication: ACNE
     Route: 061
     Dates: start: 20181010, end: 20181016
  2. PROACTIV MOISTURE REPAIR [Concomitant]
     Active Substance: COSMETICS
     Indication: ACNE
     Route: 061
     Dates: start: 20181010, end: 20181016
  3. PROACTIV MD ADAPALENE ACNE TREATMENT [Suspect]
     Active Substance: ADAPALENE
     Indication: ACNE
     Dosage: 0.1%
     Route: 061
     Dates: start: 20181010, end: 20181016
  4. PROACTIVE MD DEEP CLEANSING FACE WASH [Concomitant]
     Indication: ACNE
     Route: 061
     Dates: start: 20181010, end: 20181016
  5. PROACTIV GREEN TEA MOISTURIZER [Concomitant]
     Active Substance: COSMETICS
     Indication: ACNE
     Route: 061
     Dates: start: 20181010, end: 20181016
  6. PROACTIV CLEANSING BODY BAR [Concomitant]
     Active Substance: SALICYLIC ACID
     Indication: ACNE
     Route: 061
     Dates: start: 20181010, end: 20181016

REACTIONS (7)
  - Skin exfoliation [Recovering/Resolving]
  - Dry eye [Recovering/Resolving]
  - Eye inflammation [Recovering/Resolving]
  - Swelling face [Recovering/Resolving]
  - Pain of skin [Recovering/Resolving]
  - Dry skin [Recovering/Resolving]
  - Pruritus [Recovering/Resolving]

NARRATIVE: CASE EVENT DATE: 20181013
